FAERS Safety Report 6420073-4 (Version None)
Quarter: 2009Q4

REPORT INFORMATION
  Report Type: 
  Country: None (occurrence: None)
  Receive Date: 20091029
  Receipt Date: 20091029
  Transmission Date: 20100525
  Serious: Yes (Hospitalization, Other)
  Sender: FDA-Public Use
  Company Number: BR-PFIZER INC-2009220756

PATIENT
  Age: 86 Year

DRUGS (3)
  1. XALATAN [Suspect]
     Dosage: UNK
     Route: 047
     Dates: start: 19940101
  2. AZOPT [Concomitant]
     Dosage: UNK
     Dates: start: 19940101
  3. ALPHAGAN [Concomitant]
     Dosage: UNK
     Dates: start: 19940101

REACTIONS (3)
  - BLINDNESS [None]
  - CATARACT OPERATION [None]
  - ULCERATIVE KERATITIS [None]
